FAERS Safety Report 5592920-X (Version None)
Quarter: 2008Q1

REPORT INFORMATION
  Report Type: 
  Country: None (occurrence: None)
  Receive Date: 20080116
  Receipt Date: 20080103
  Transmission Date: 20080703
  Serious: Yes (Other)
  Sender: FDA-Public Use
  Company Number: US-AMGEN-US253652

PATIENT
  Sex: Male

DRUGS (9)
  1. PROCRIT [Suspect]
     Indication: MYELODYSPLASTIC SYNDROME
     Route: 065
  2. ARANESP [Suspect]
     Route: 058
     Dates: end: 20070411
  3. TOPROL-XL [Concomitant]
  4. FISH OIL [Concomitant]
  5. SINGULAIR [Concomitant]
  6. VITAMIN B6 [Concomitant]
  7. DANAZOL [Concomitant]
     Route: 048
  8. ACYCLOVIR [Concomitant]
  9. LIPITOR [Concomitant]
     Route: 048

REACTIONS (4)
  - ALPHA HAEMOLYTIC STREPTOCOCCAL INFECTION [None]
  - BONE MARROW FAILURE [None]
  - MYELOFIBROSIS [None]
  - THROMBOCYTOPENIA [None]
